FAERS Safety Report 9610654 (Version 1)
Quarter: 2013Q4

REPORT INFORMATION
  Report Type: Report from Study
  Country: US (occurrence: US)
  Receive Date: 20131009
  Receipt Date: 20131009
  Transmission Date: 20140711
  Serious: Yes (Hospitalization, Other)
  Sender: FDA-Public Use
  Company Number: US-US-EMD SERONO, INC.-7241604

PATIENT
  Sex: Male

DRUGS (3)
  1. REBIF [Suspect]
     Indication: MULTIPLE SCLEROSIS
     Route: 058
     Dates: start: 20071120
  2. IBUPROFEN [Concomitant]
     Indication: PREMEDICATION
  3. TYLENOL                            /00020001/ [Concomitant]
     Indication: PREMEDICATION

REACTIONS (9)
  - Sepsis [Unknown]
  - Dysphagia [Unknown]
  - Choking [Unknown]
  - Pseudomonas infection [Unknown]
  - Secondary progressive multiple sclerosis [Not Recovered/Not Resolved]
  - Cystitis [Not Recovered/Not Resolved]
  - Pyrexia [Recovered/Resolved]
  - Injection site irritation [Not Recovered/Not Resolved]
  - Injection site erythema [Not Recovered/Not Resolved]
